FAERS Safety Report 5002766-9 (Version None)
Quarter: 2006Q2

REPORT INFORMATION
  Report Type: 
  Country: None (occurrence: None)
  Receive Date: 20060512
  Receipt Date: 20060427
  Transmission Date: 20061013
  Serious: Yes (Hospitalization)
  Sender: FDA-Public Use
  Company Number: 2006S1002530

PATIENT
  Age: 26 Year
  Sex: Male

DRUGS (2)
  1. CLOZAPINE [Suspect]
     Dosage: 800 MG, QD, ORAL
     Route: 048
     Dates: start: 20060301, end: 20060320
  2. CLOZAPINE [Suspect]
     Dosage: 800 MG, QD, ORAL
     Route: 048
     Dates: start: 20060322, end: 20060329

REACTIONS (1)
  - GRANULOCYTOPENIA [None]
